FAERS Safety Report 15044565 (Version 1)
Quarter: 2018Q2

REPORT INFORMATION
  Report Type: Report from Study
  Country: AU (occurrence: AU)
  Receive Date: 20180621
  Receipt Date: 20180621
  Transmission Date: 20180711
  Serious: Yes (Hospitalization)
  Sender: FDA-Public Use
  Company Number: AU-SA-2017SA223055

PATIENT
  Age: 61 Year
  Sex: Female

DRUGS (9)
  1. GLICLAZIDE [Concomitant]
     Active Substance: GLICLAZIDE
  2. MAGNESIUM [Concomitant]
     Active Substance: MAGNESIUM
     Dosage: UNK UNK,UNK
  3. ACETYLSALICYLIC ACID [Concomitant]
     Active Substance: ASPIRIN
  4. REAPTAN [Concomitant]
     Active Substance: AMLODIPINE BESYLATE\PERINDOPRIL ARGININE
  5. INSULIN GLARGINE [Suspect]
     Active Substance: INSULIN GLARGINE
     Dosage: 20 DF,QD
     Route: 051
     Dates: start: 20150615
  6. DITHIAZIDE [Concomitant]
     Active Substance: HYDROCHLOROTHIAZIDE
  7. METFORMIN [Concomitant]
     Active Substance: METFORMIN HYDROCHLORIDE
  8. THYROXIN [Concomitant]
     Active Substance: LEVOTHYROXINE
  9. ATORVASTATIN [Concomitant]
     Active Substance: ATORVASTATIN

REACTIONS (11)
  - Hyponatraemia [Unknown]
  - Oedema peripheral [Recovering/Resolving]
  - Asthenia [Unknown]
  - Blood pressure increased [Recovered/Resolved]
  - Weight increased [Unknown]
  - Blood glucose increased [Recovered/Resolved]
  - Joint swelling [Unknown]
  - Injection site pain [Unknown]
  - Blood magnesium decreased [Unknown]
  - Glycosylated haemoglobin increased [Unknown]
  - Intentional product misuse [Unknown]

NARRATIVE: CASE EVENT DATE: 20170415
